FAERS Safety Report 23812798 (Version 3)
Quarter: 2024Q2

REPORT INFORMATION
  Report Type: Spontaneous
  Country: BR (occurrence: BR)
  Receive Date: 20240503
  Receipt Date: 20240619
  Transmission Date: 20240716
  Serious: Yes (Disabling)
  Sender: FDA-Public Use
  Company Number: BR-Accord-422262

PATIENT
  Age: 71 Year
  Sex: Male
  Weight: 76 kg

DRUGS (5)
  1. ROSUVASTATIN CALCIUM [Suspect]
     Active Substance: ROSUVASTATIN CALCIUM
     Indication: Blood cholesterol increased
     Dosage: STRENGTH: 10 MG, 1 TABLET PER DAY AFTER DINNER
     Route: 048
     Dates: start: 20240416, end: 20240418
  2. METFORMIN HYDROCHLORIDE [Concomitant]
     Active Substance: METFORMIN HYDROCHLORIDE
     Indication: Diabetes mellitus
     Dosage: STRENGTH: 500 MG
  3. TAMSULOSIN [Concomitant]
     Active Substance: TAMSULOSIN
     Dosage: STRENGTH: 0.2 MG
  4. BENSERAZIDE\LEVODOPA [Concomitant]
     Active Substance: BENSERAZIDE\LEVODOPA
     Indication: Parkinson^s disease
     Dosage: STRENGTH: 100 MG AND 25 MG
  5. CANNABIDIOL [Concomitant]
     Active Substance: CANNABIDIOL
     Indication: Pain
     Dosage: STRENGTH: 1800 MG

REACTIONS (5)
  - Dizziness [Recovered/Resolved]
  - Pruritus [Recovered/Resolved]
  - Gait inability [Recovered/Resolved]
  - Malaise [Recovered/Resolved]
  - Condition aggravated [Recovered/Resolved]

NARRATIVE: CASE EVENT DATE: 20240416
